FAERS Safety Report 13490814 (Version 1)
Quarter: 2017Q2

REPORT INFORMATION
  Report Type: Spontaneous
  Country: US (occurrence: US)
  Receive Date: 20170427
  Receipt Date: 20170427
  Transmission Date: 20170830
  Serious: No
  Sender: FDA-Public Use
  Company Number: US-MYLANLABS-2017M1001560

PATIENT
  Sex: Male

DRUGS (1)
  1. LUXIQ [Suspect]
     Active Substance: BETAMETHASONE VALERATE
     Indication: SKIN DISORDER
     Dosage: USE AS DIRECTED

REACTIONS (2)
  - Expired product administered [Recovered/Resolved]
  - Product quality issue [None]
